FAERS Safety Report 9787853 (Version 2)
Quarter: 2014Q3

REPORT INFORMATION
  Report Type: Spontaneous
  Country: US (occurrence: US)
  Receive Date: 20131230
  Receipt Date: 20140729
  Transmission Date: 20150326
  Serious: Yes (Other)
  Sender: FDA-Public Use
  Company Number: US-BAYER-2013-158037

PATIENT
  Age: 33 Year
  Sex: Female
  Weight: 74.83 kg

DRUGS (1)
  1. MIRENA [Suspect]
     Active Substance: LEVONORGESTREL
     Indication: CONTRACEPTION
     Dosage: 20 MCG/24HR, CONT
     Route: 015
     Dates: start: 20110401, end: 20131218

REACTIONS (9)
  - Device dislocation [Recovered/Resolved]
  - Abdominal pain lower [Recovered/Resolved]
  - Haemorrhage in pregnancy [Recovered/Resolved]
  - Pregnancy with contraceptive device [Recovered/Resolved]
  - Device difficult to use [None]
  - Abortion spontaneous [Recovered/Resolved]
  - Uterine perforation [Recovered/Resolved]
  - Abdominal pain [Recovered/Resolved]
  - Drug ineffective [None]

NARRATIVE: CASE EVENT DATE: 2013
